FAERS Safety Report 6232687-5 (Version None)
Quarter: 2009Q2

REPORT INFORMATION
  Report Type: 
  Country: None (occurrence: None)
  Receive Date: 20090617
  Receipt Date: 20090608
  Transmission Date: 20091009
  Serious: Yes (Hospitalization, Other)
  Sender: FDA-Public Use
  Company Number: JP-PFIZER INC-2009186792

PATIENT
  Age: 85 Year

DRUGS (1)
  1. CARDENALIN [Suspect]
     Dosage: UNK
     Route: 048

REACTIONS (3)
  - BRADYCARDIA [None]
  - FALL [None]
  - SYNCOPE [None]
